FAERS Safety Report 4519361-8 (Version None)
Quarter: 2004Q4

REPORT INFORMATION
  Report Type: 
  Country: None (occurrence: None)
  Receive Date: 20041130
  Receipt Date: 20041115
  Transmission Date: 20050328
  Serious: Yes (Hospitalization)
  Sender: FDA-Public Use
  Company Number: A0533849A

PATIENT
  Age: 54 Year
  Sex: Male
  Weight: 74.8435 kg

DRUGS (5)
  1. NICODERM CQ [Suspect]
     Indication: EX-SMOKER
     Dosage: 21 MG TRANSDERMAL
     Route: 062
     Dates: start: 20041105
  2. NICORETTE [Suspect]
     Indication: EX-SMOKER
     Dosage: 4 MG TRANSBUCCAL
     Dates: start: 20041107, end: 20041108
  3. TERAZOSIN HYDROCHLORIDE [Concomitant]
  4. VENLAFAXINE HCL [Concomitant]
  5. LANSOPRAZOLE [Concomitant]

REACTIONS (7)
  - CHRONIC OBSTRUCTIVE AIRWAYS DISEASE [None]
  - DIAPHRAGMATIC DISORDER [None]
  - INCREASED APPETITE [None]
  - PAIN [None]
  - STOMATITIS [None]
  - THROAT IRRITATION [None]
  - TREMOR [None]
